FAERS Safety Report 13699412 (Version 1)
Quarter: 2017Q2

REPORT INFORMATION
  Report Type: Spontaneous
  Country: FR (occurrence: FR)
  Receive Date: 20170628
  Receipt Date: 20170628
  Transmission Date: 20170830
  Serious: Yes (Hospitalization)
  Sender: FDA-Public Use
  Company Number: PHHY2017FR090502

PATIENT
  Age: 13 Year
  Sex: Female

DRUGS (1)
  1. IBUPROFEN. [Suspect]
     Active Substance: IBUPROFEN
     Indication: TONSILLITIS
     Route: 065

REACTIONS (13)
  - Generalised tonic-clonic seizure [Unknown]
  - Chills [Unknown]
  - Respiration abnormal [Unknown]
  - Musculoskeletal stiffness [Unknown]
  - Asthenia [Unknown]
  - Pyrexia [Unknown]
  - Rash macular [Unknown]
  - Pneumonia staphylococcal [Unknown]
  - Septic shock [Unknown]
  - Haemodynamic instability [Unknown]
  - Tachycardia [Unknown]
  - Dyspnoea [Unknown]
  - Leukocyturia [Unknown]
